FAERS Safety Report 4687753-2 (Version None)
Quarter: 2005Q2

REPORT INFORMATION
  Report Type: 
  Country: None (occurrence: None)
  Receive Date: 20050610
  Receipt Date: 20050603
  Transmission Date: 20051028
  Serious: Yes (Other)
  Sender: FDA-Public Use
  Company Number: 200514917GDDC

PATIENT
  Age: 41 Year
  Sex: Female

DRUGS (1)
  1. NICODERM [Suspect]
     Dosage: 21MG UNKNOWN
     Route: 062
     Dates: start: 20030101, end: 20030101

REACTIONS (13)
  - ANGINA PECTORIS [None]
  - DRUG TOXICITY [None]
  - ECZEMA [None]
  - ENERGY INCREASED [None]
  - ERYTHEMA [None]
  - FLUID RETENTION [None]
  - HYPERTENSIVE CRISIS [None]
  - IRRITABILITY [None]
  - MALAISE [None]
  - MIGRAINE [None]
  - OEDEMA [None]
  - RENAL IMPAIRMENT [None]
  - WEIGHT INCREASED [None]
